FAERS Safety Report 8832411 (Version 2)
Quarter: 2012Q4

REPORT INFORMATION
  Report Type: Spontaneous
  Country: US (occurrence: None)
  Receive Date: 20121005
  Receipt Date: 20121116
  Transmission Date: 20130627
  Serious: Yes (Death)
  Sender: FDA-Public Use
  Company Number: DKLU1084913

PATIENT
  Age: 17 Month
  Sex: Female

DRUGS (5)
  1. SABRIL [Suspect]
     Indication: INFANTILE SPASMS
     Route: 048
     Dates: start: 20111117
  2. KEPPRA [Concomitant]
  3. KLONOPIN (CLONAZEPAM) [Concomitant]
  4. TOPAMAX (TOPIRAMATE) [Concomitant]
  5. PREDNISONE (PREDNISONE) [Concomitant]

REACTIONS (1)
  - Death [None]
